FAERS Safety Report 6979474-8 (Version None)
Quarter: 2010Q3

REPORT INFORMATION
  Report Type: 
  Country: None (occurrence: None)
  Receive Date: 20100908
  Receipt Date: 20100830
  Transmission Date: 20110219
  Serious: Yes (Hospitalization)
  Sender: FDA-Public Use
  Company Number: MSTR-NO-1009S-0301

PATIENT
  Age: 71 Year
  Sex: Female
  Weight: 42.5 kg

DRUGS (1)
  1. METASTRON [Suspect]
     Indication: METASTATIC PAIN
     Dosage: 85 MBQ, SINGLE DOSE, I.V.
     Route: 042
     Dates: start: 20090716, end: 20090716

REACTIONS (4)
  - GASTRIC CANCER [None]
  - LARGE INTESTINE CARCINOMA [None]
  - MALIGNANT NEOPLASM PROGRESSION [None]
  - SHOCK HAEMORRHAGIC [None]
